FAERS Safety Report 5771960-1 (Version None)
Quarter: 2008Q2

REPORT INFORMATION
  Report Type: 
  Country: None (occurrence: None)
  Receive Date: 20080601
  Receipt Date: 20080229
  Transmission Date: 20081010
  Serious: No
  Sender: FDA-Public Use
  Company Number: US200803000005

PATIENT
  Sex: Female

DRUGS (7)
  1. BYETTA [Suspect]
     Dosage: SUBCUTANEOUS
     Route: 058
  2. EXENATIDE PEN, DISPOSABLE DEVICE (EXENATIDE PEN) PEN,DISPOSABLE [Concomitant]
  3. HUMULIN R [Concomitant]
  4. NAPROSYN SR (NAPROXEN) [Concomitant]
  5. SOLPRIN (ACETYLSALICYLIC ACID) [Concomitant]
  6. PANTOPRAZOLE SODIUM [Concomitant]
  7. VASOCARDOL (DILTIAZEM HYDROCHLORIDE) [Concomitant]

REACTIONS (1)
  - PRESYNCOPE [None]
